FAERS Safety Report 9780357 (Version 2)
Quarter: 2013Q4

REPORT INFORMATION
  Report Type: Report from Study
  Country: CA (occurrence: CA)
  Receive Date: 20131224
  Receipt Date: 20131224
  Transmission Date: 20140711
  Serious: Yes (Other)
  Sender: FDA-Public Use
  Company Number: CA-ROCHE-1254427

PATIENT
  Age: 81 Year
  Sex: Female

DRUGS (16)
  1. RITUXAN [Suspect]
     Indication: RHEUMATOID ARTHRITIS
     Dosage: LAST DOSE PRIOR TO SAE 25 JUL 2013.
     Route: 042
     Dates: start: 20130711
  2. TYLENOL [Concomitant]
     Indication: PREMEDICATION
     Route: 048
     Dates: start: 20130711
  3. BENADRYL (CANADA) [Concomitant]
     Indication: PREMEDICATION
     Route: 048
     Dates: start: 20130711
  4. SOLU-MEDROL [Concomitant]
     Indication: PREMEDICATION
     Route: 042
     Dates: start: 20130711
  5. ACTONEL [Concomitant]
  6. GABAPENTIN [Concomitant]
  7. GLICLAZIDE [Concomitant]
  8. DOXAZOSIN [Concomitant]
  9. LORAZEPAM [Concomitant]
  10. MELOXICAM [Concomitant]
  11. METFORMIN [Concomitant]
  12. PLAVIX [Concomitant]
  13. ATACAND [Concomitant]
  14. ATENOLOL [Concomitant]
  15. LANSOPRAZOLE [Concomitant]
  16. NITRO-DUR PATCH [Concomitant]

REACTIONS (3)
  - Spinal column stenosis [Not Recovered/Not Resolved]
  - Blood pressure increased [Unknown]
  - Pain in extremity [Not Recovered/Not Resolved]
